FAERS Safety Report 24217322 (Version 1)
Quarter: 2024Q3

REPORT INFORMATION
  Report Type: Spontaneous
  Country: ES (occurrence: ES)
  Receive Date: 20240816
  Receipt Date: 20240816
  Transmission Date: 20241016
  Serious: Yes (Other)
  Sender: MERCK
  Company Number: None

PATIENT
  Sex: Female

DRUGS (2)
  1. ERTAPENEM SODIUM [Interacting]
     Active Substance: ERTAPENEM SODIUM
     Indication: Genitourinary tract infection
     Route: 042
     Dates: start: 20240615, end: 20240617
  2. VALPROIC ACID [Interacting]
     Active Substance: VALPROIC ACID
     Indication: Epilepsy
     Route: 048
     Dates: start: 2022

REACTIONS (2)
  - Seizure [Recovered/Resolved]
  - Labelled drug-drug interaction medication error [Recovered/Resolved]

NARRATIVE: CASE EVENT DATE: 20240615
